FAERS Safety Report 14987660 (Version 1)
Quarter: 2018Q2

REPORT INFORMATION
  Report Type: Spontaneous
  Country: RU (occurrence: RU)
  Receive Date: 20180608
  Receipt Date: 20180608
  Transmission Date: 20180711
  Serious: Yes (Other)
  Sender: FDA-Public Use
  Company Number: PHHY2018RU014749

PATIENT
  Sex: Female

DRUGS (2)
  1. UPERIO [Suspect]
     Active Substance: SACUBITRIL\VALSARTAN
     Indication: CARDIAC FAILURE CHRONIC
     Dosage: 50 MG, BID
     Route: 065
  2. UPERIO [Suspect]
     Active Substance: SACUBITRIL\VALSARTAN
     Indication: SYSTOLIC DYSFUNCTION

REACTIONS (1)
  - Laryngeal stenosis [Recovered/Resolved]
